FAERS Safety Report 6370815-1 (Version None)
Quarter: 2009Q3

REPORT INFORMATION
  Report Type: 
  Country: None (occurrence: None)
  Receive Date: 20090923
  Receipt Date: 20070614
  Transmission Date: 20100115
  Serious: Yes (Other)
  Sender: FDA-Public Use
  Company Number: US-ASTRAZENECA-2006UW24898

PATIENT
  Age: 36 Year
  Sex: Male
  Weight: 74.8 kg

DRUGS (19)
  1. SEROQUEL [Suspect]
     Indication: BIPOLAR DISORDER
     Dosage: 100 MG - 400 MG
     Route: 048
     Dates: start: 20040813
  2. SEROQUEL [Suspect]
     Indication: ANXIETY
     Dosage: 100 MG - 400 MG
     Route: 048
     Dates: start: 20040813
  3. SEROQUEL [Suspect]
     Indication: DEPRESSION
     Dosage: 100 MG - 400 MG
     Route: 048
     Dates: start: 20040813
  4. SEROQUEL [Suspect]
     Indication: PARANOIA
     Dosage: 100 MG - 400 MG
     Route: 048
     Dates: start: 20040813
  5. SEROQUEL [Suspect]
     Indication: SLEEP DISORDER
     Dosage: 100 MG - 400 MG
     Route: 048
     Dates: start: 20040813
  6. SEROQUEL [Suspect]
     Route: 048
     Dates: start: 20050101
  7. SEROQUEL [Suspect]
     Route: 048
     Dates: start: 20050101
  8. SEROQUEL [Suspect]
     Route: 048
     Dates: start: 20050101
  9. SEROQUEL [Suspect]
     Route: 048
     Dates: start: 20050101
  10. SEROQUEL [Suspect]
     Route: 048
     Dates: start: 20050101
  11. MARIJUANA [Concomitant]
  12. CYMBALTA [Concomitant]
  13. ZYPREXA [Concomitant]
  14. TRAZODONE [Concomitant]
  15. DEPAKOTE [Concomitant]
  16. LANTUS [Concomitant]
  17. ADVAIR HFA [Concomitant]
  18. ACETAMINOPHEN [Concomitant]
  19. IBUPROFEN [Concomitant]

REACTIONS (3)
  - DIABETES MELLITUS [None]
  - DIABETIC COMA [None]
  - KETOACIDOSIS [None]
